FAERS Safety Report 23374097 (Version 1)
Quarter: 2024Q1

REPORT INFORMATION
  Report Type: Spontaneous
  Country: US (occurrence: US)
  Receive Date: 20240105
  Receipt Date: 20240105
  Transmission Date: 20240410
  Serious: No
  Sender: FDA-Public Use
  Company Number: US-COOPERSURGICAL, INC.-US-2023CPS002894

PATIENT
  Age: 19 Year
  Sex: Female

DRUGS (1)
  1. PARAGARD T 380A [Suspect]
     Active Substance: COPPER
     Indication: Product used for unknown indication
     Dosage: UNK
     Route: 015
     Dates: start: 20230829

REACTIONS (9)
  - Procedural haemorrhage [Unknown]
  - Procedural vomiting [Unknown]
  - Decreased appetite [Unknown]
  - Uterine pain [None]
  - Swelling [Unknown]
  - Procedural pain [Unknown]
  - Procedural nausea [Unknown]
  - Gait disturbance [None]
  - Vaginal discharge [Unknown]

NARRATIVE: CASE EVENT DATE: 20230829
